FAERS Safety Report 6533251-0 (Version None)
Quarter: 2010Q1

REPORT INFORMATION
  Report Type: 
  Country: None (occurrence: None)
  Receive Date: 20100111
  Receipt Date: 20100106
  Transmission Date: 20100710
  Serious: Yes (Death)
  Sender: FDA-Public Use
  Company Number: BR-SANOFI-AVENTIS-2010SA000913

PATIENT
  Age: 86 Year
  Sex: Female
  Weight: 80 kg

DRUGS (3)
  1. CLEXANE SYRINGES [Suspect]
     Indication: PROPHYLAXIS
     Dates: start: 20090201
  2. ANCORON [Concomitant]
  3. ANTIBIOTICS [Concomitant]
     Indication: INFECTION

REACTIONS (1)
  - INFECTION [None]
